FAERS Safety Report 17365599 (Version 2)
Quarter: 2020Q1

REPORT INFORMATION
  Report Type: Report from Study
  Country: US (occurrence: US)
  Receive Date: 20200204
  Receipt Date: 20200303
  Transmission Date: 20200409
  Serious: Yes (Hospitalization, Other)
  Sender: FDA-Public Use
  Company Number: US-ROCHE-2472502

PATIENT
  Age: 70 Year
  Sex: Female
  Weight: 88.08 kg

DRUGS (20)
  1. PREDNISONE. [Suspect]
     Active Substance: PREDNISONE
     Dosage: DAILY FOR 5 WEEKS
     Route: 048
     Dates: start: 20180917
  2. PREDNISONE. [Suspect]
     Active Substance: PREDNISONE
     Dosage: ONGOING: NO ?UNKNOWN TAPER DOSE LESS THAN 40 MG
     Route: 048
  3. PREMARIN [Concomitant]
     Active Substance: ESTROGENS, CONJUGATED
     Indication: OESTROGEN REPLACEMENT THERAPY
     Route: 048
  4. RIZATRIPTAN. [Concomitant]
     Active Substance: RIZATRIPTAN
     Indication: MIGRAINE
     Dosage: 10 MG THEN ANOTHER 10 MG IF NEEDED IN 2 HOURS; ONGOING: YES
     Route: 048
     Dates: start: 1999
  5. SYNTHROID [Concomitant]
     Active Substance: LEVOTHYROXINE SODIUM
     Indication: HYPOTHYROIDISM
     Dosage: 112 MCG
     Route: 048
  6. ATORVASTATIN [Concomitant]
     Active Substance: ATORVASTATIN
     Indication: BLOOD CHOLESTEROL INCREASED
     Route: 065
     Dates: start: 2016
  7. PREDNISONE. [Suspect]
     Active Substance: PREDNISONE
     Route: 048
     Dates: start: 2019
  8. TYLENOL [Concomitant]
     Active Substance: ACETAMINOPHEN
     Indication: PAIN
     Dosage: ONGOING: YES, AS NEEDED
     Route: 065
  9. PREDNISONE. [Suspect]
     Active Substance: PREDNISONE
     Dosage: ONGOING: YES
     Route: 048
     Dates: start: 2019
  10. FERROUS SULFATE. [Concomitant]
     Active Substance: FERROUS SULFATE
     Indication: BLOOD IRON
     Route: 065
  11. TRAZODONE [Concomitant]
     Active Substance: TRAZODONE HYDROCHLORIDE
     Indication: INSOMNIA
     Dosage: ONCE AT NIGHT
     Route: 048
     Dates: start: 2005
  12. ACTEMRA [Suspect]
     Active Substance: TOCILIZUMAB
     Indication: TEMPORAL ARTERITIS
     Route: 058
     Dates: start: 2019, end: 20191112
  13. PREDNISONE. [Suspect]
     Active Substance: PREDNISONE
     Indication: TEMPORAL ARTERITIS
     Route: 048
     Dates: start: 201905
  14. PREDNISONE. [Suspect]
     Active Substance: PREDNISONE
     Route: 048
  15. DULOXETINE. [Concomitant]
     Active Substance: DULOXETINE
     Indication: FIBROMYALGIA
     Route: 048
     Dates: start: 1997
  16. DULOXETINE. [Concomitant]
     Active Substance: DULOXETINE
     Indication: DEPRESSION
  17. OMEPRAZOLE. [Concomitant]
     Active Substance: OMEPRAZOLE
     Indication: GASTROOESOPHAGEAL REFLUX DISEASE
     Route: 048
     Dates: start: 1990
  18. GABAPENTIN. [Concomitant]
     Active Substance: GABAPENTIN
     Indication: PAIN
     Route: 048
     Dates: start: 20191116
  19. ACTEMRA [Suspect]
     Active Substance: TOCILIZUMAB
     Indication: TEMPORAL ARTERITIS
  20. VERAPAMIL [Concomitant]
     Active Substance: VERAPAMIL HYDROCHLORIDE
     Route: 048

REACTIONS (30)
  - Anxiety [Not Recovered/Not Resolved]
  - Candida infection [Recovering/Resolving]
  - Arthritis infective [Not Recovered/Not Resolved]
  - Knee arthroplasty [Unknown]
  - Thrombosis [Recovered/Resolved]
  - Immunodeficiency [Not Recovered/Not Resolved]
  - Dysphagia [Recovering/Resolving]
  - Haemorrhoids [Not Recovered/Not Resolved]
  - Drug hypersensitivity [Unknown]
  - Migraine [Not Recovered/Not Resolved]
  - Pain in jaw [Not Recovered/Not Resolved]
  - Contusion [Not Recovered/Not Resolved]
  - Skin laceration [Not Recovered/Not Resolved]
  - Arthralgia [Recovered/Resolved]
  - Transient ischaemic attack [Not Recovered/Not Resolved]
  - Oropharyngeal blistering [Recovering/Resolving]
  - Anorectal swelling [Not Recovered/Not Resolved]
  - Visual impairment [Not Recovered/Not Resolved]
  - Cellulitis [Unknown]
  - Gastrointestinal infection [Recovered/Resolved]
  - Hypophagia [Recovering/Resolving]
  - Diplopia [Not Recovered/Not Resolved]
  - Dyspepsia [Not Recovered/Not Resolved]
  - Back pain [Not Recovered/Not Resolved]
  - Pain of skin [Not Recovered/Not Resolved]
  - Mouth swelling [Recovering/Resolving]
  - Hypertension [Recovering/Resolving]
  - Swelling [Recovering/Resolving]
  - Amnesia [Not Recovered/Not Resolved]
  - Malaise [Unknown]

NARRATIVE: CASE EVENT DATE: 2019
